FAERS Safety Report 16243439 (Version 2)
Quarter: 2022Q2

REPORT INFORMATION
  Report Type: Report from Study
  Country: US (occurrence: None)
  Receive Date: 20190426
  Receipt Date: 20220511
  Transmission Date: 20220721
  Serious: Yes (Hospitalization, Other)
  Sender: FDA-Public Use
  Company Number: US-ROCHE-2306697

PATIENT
  Age: 57 Year
  Sex: Female
  Weight: 60.4 kg

DRUGS (23)
  1. ATEZOLIZUMAB [Suspect]
     Active Substance: ATEZOLIZUMAB
     Indication: Cholangiocarcinoma
     Route: 042
     Dates: start: 20180723, end: 20180906
  2. CARBOXYMETHYLCELLULOSE SODIUM [Concomitant]
     Active Substance: CARBOXYMETHYLCELLULOSE SODIUM
  3. CETIRIZINE HYDROCHLORIDE [Concomitant]
     Active Substance: CETIRIZINE HYDROCHLORIDE
  4. DEXAMETHASONE [Concomitant]
     Active Substance: DEXAMETHASONE
  5. DIPHENHYDRAMINE [Concomitant]
     Active Substance: DIPHENHYDRAMINE
  6. DOCUSATE SODIUM [Concomitant]
     Active Substance: DOCUSATE SODIUM
  7. FENTANYL [Concomitant]
     Active Substance: FENTANYL
  8. FLUTICASONE [Concomitant]
     Active Substance: FLUTICASONE
  9. GLYBURIDE [Concomitant]
     Active Substance: GLYBURIDE
  10. GLYCERIN [Concomitant]
     Active Substance: GLYCERIN
  11. LIDOCAINE [Concomitant]
     Active Substance: LIDOCAINE
  12. LORAZEPAM [Concomitant]
     Active Substance: LORAZEPAM
  13. MECLIZINE [Concomitant]
     Active Substance: MECLIZINE HYDROCHLORIDE
  14. METFORMIN [Concomitant]
     Active Substance: METFORMIN HYDROCHLORIDE
  15. MIRTAZAPINE [Concomitant]
     Active Substance: MIRTAZAPINE
  16. NYSTATIN [Concomitant]
     Active Substance: NYSTATIN
  17. ONDANSETRON [Concomitant]
     Active Substance: ONDANSETRON
  18. OXYCODONE [Concomitant]
     Active Substance: OXYCODONE
  19. PANTOPRAZOLE [Concomitant]
     Active Substance: PANTOPRAZOLE
  20. PROCHLORPERAZINE [Concomitant]
     Active Substance: PROCHLORPERAZINE
  21. SENNOSIDES [Concomitant]
     Active Substance: SENNOSIDES
  22. SODIUM CHLORIDE [Concomitant]
     Active Substance: SODIUM CHLORIDE
  23. LACTULOSE [Concomitant]
     Active Substance: LACTULOSE

REACTIONS (6)
  - Pain in extremity [Recovered/Resolved]
  - Localised oedema [Recovered/Resolved]
  - Osteoarthritis [Unknown]
  - Nausea [Recovered/Resolved]
  - Abdominal pain [Recovered/Resolved]
  - Hypercalcaemia [Recovered/Resolved]

NARRATIVE: CASE EVENT DATE: 20180729
